FAERS Safety Report 6340003-3 (Version None)
Quarter: 2009Q3

REPORT INFORMATION
  Report Type: 
  Country: None (occurrence: None)
  Receive Date: 20090903
  Receipt Date: 20090824
  Transmission Date: 20100115
  Serious: Yes (Death, Other)
  Sender: FDA-Public Use
  Company Number: US-BAXTER-2009BH008174

PATIENT
  Age: 80 Year
  Sex: Male

DRUGS (6)
  1. HEPARIN SODIUM INJECTION [Suspect]
     Indication: DRUG USE FOR UNKNOWN INDICATION
     Route: 042
     Dates: start: 20080304, end: 20080305
  2. HEPARIN SODIUM INJECTION [Suspect]
     Indication: THROMBOSIS PROPHYLAXIS
     Route: 042
     Dates: start: 20080304, end: 20080305
  3. HEPARIN SODIUM INJECTION [Suspect]
     Route: 042
     Dates: start: 20080304, end: 20080305
  4. HEPARIN SODIUM INJECTION [Suspect]
     Route: 042
     Dates: start: 20080430, end: 20080501
  5. HEPARIN SODIUM INJECTION [Suspect]
     Route: 042
     Dates: start: 20080430, end: 20080501
  6. HEPARIN SODIUM INJECTION [Suspect]
     Route: 042
     Dates: start: 20080430, end: 20080501

REACTIONS (19)
  - ABDOMINAL PAIN [None]
  - ANAEMIA [None]
  - BRADYCARDIA [None]
  - CEREBROVASCULAR DISORDER [None]
  - CHEST PAIN [None]
  - CHRONIC OBSTRUCTIVE PULMONARY DISEASE [None]
  - CONFUSIONAL STATE [None]
  - CORONARY ARTERY DISEASE [None]
  - ECCHYMOSIS [None]
  - HAEMOLYSIS [None]
  - HYPERSENSITIVITY [None]
  - HYPOTENSION [None]
  - LIVEDO RETICULARIS [None]
  - MULTI-ORGAN FAILURE [None]
  - PERIPHERAL ARTERIAL OCCLUSIVE DISEASE [None]
  - RENAL FAILURE [None]
  - RESPIRATORY ARREST [None]
  - SEPSIS [None]
  - SHOCK [None]
